FAERS Safety Report 21375602 (Version 1)
Quarter: 2022Q3

REPORT INFORMATION
  Report Type: Spontaneous
  Country: US (occurrence: US)
  Receive Date: 20220926
  Receipt Date: 20220926
  Transmission Date: 20221027
  Serious: No
  Sender: FDA-Public Use
  Company Number: US-GLAXOSMITHKLINE-US2022AMR133753

PATIENT
  Sex: Female
  Weight: 48 kg

DRUGS (4)
  1. ZEJULA [Suspect]
     Active Substance: NIRAPARIB
     Indication: Ovarian cancer
     Dosage: 100 MG, QD
  2. ZEJULA [Suspect]
     Active Substance: NIRAPARIB
     Dosage: 200 MG, QD
     Route: 048
     Dates: start: 20220501
  3. ZEJULA [Suspect]
     Active Substance: NIRAPARIB
     Dosage: 100 MG, QD
  4. LEVOTHYROXINE [Concomitant]
     Active Substance: LEVOTHYROXINE
     Indication: Hypothyroidism
     Dosage: UNK

REACTIONS (8)
  - Fatigue [Not Recovered/Not Resolved]
  - Photosensitivity reaction [Recovering/Resolving]
  - Constipation [Not Recovered/Not Resolved]
  - Heart rate increased [Recovering/Resolving]
  - Blood pressure increased [Recovering/Resolving]
  - Red blood cell count decreased [Recovering/Resolving]
  - Haemoglobin decreased [Recovering/Resolving]
  - Off label use [Unknown]
